FAERS Safety Report 25383513 (Version 2)
Quarter: 2025Q3

REPORT INFORMATION
  Report Type: Spontaneous
  Country: US (occurrence: US)
  Receive Date: 20250602
  Receipt Date: 20250813
  Transmission Date: 20251021
  Serious: No
  Sender: CHIESI
  Company Number: US-CHIESI-2025CHF01972

PATIENT
  Sex: Female

DRUGS (4)
  1. ELFABRIO [Suspect]
     Active Substance: PEGUNIGALSIDASE ALFA-IWXJ
     Indication: Fabry^s disease
     Route: 042
     Dates: start: 20250311, end: 2025
  2. ELFABRIO [Suspect]
     Active Substance: PEGUNIGALSIDASE ALFA-IWXJ
     Dosage: 1 MILLIGRAM/KILOGRAM, QOW
     Route: 042
     Dates: start: 2025, end: 2025
  3. TYLENOL [Concomitant]
     Active Substance: ACETAMINOPHEN
     Indication: Premedication
  4. ALLEGRA [Concomitant]
     Active Substance: FEXOFENADINE HYDROCHLORIDE
     Indication: Premedication

REACTIONS (5)
  - Nausea [Recovered/Resolved]
  - Nausea [Recovered/Resolved]
  - Vomiting [Recovered/Resolved]
  - Abdominal pain [Not Recovered/Not Resolved]
  - Off label use [Recovered/Resolved]

NARRATIVE: CASE EVENT DATE: 20250101
